FAERS Safety Report 21689245 (Version 1)
Quarter: 2022Q4

REPORT INFORMATION
  Report Type: Spontaneous
  Country: US (occurrence: None)
  Receive Date: 20221205
  Receipt Date: 20221205
  Transmission Date: 20230112
  Serious: Yes (Hospitalization)
  Sender: FDA-Public Use
  Company Number: None

PATIENT
  Sex: Female

DRUGS (1)
  1. CAPECITABINE [Suspect]
     Active Substance: CAPECITABINE
     Dosage: 3500MG DAILY ORAL
     Route: 048

REACTIONS (8)
  - Diarrhoea [None]
  - Malaise [None]
  - Alopecia [None]
  - Madarosis [None]
  - Dehydration [None]
  - Gait inability [None]
  - Blood potassium abnormal [None]
  - Blood calcium abnormal [None]
